FAERS Safety Report 7178833-0 (Version None)
Quarter: 2010Q4

REPORT INFORMATION
  Report Type: 
  Country: None (occurrence: None)
  Receive Date: 20101221
  Receipt Date: 20101213
  Transmission Date: 20110411
  Serious: No
  Sender: FDA-Public Use
  Company Number: US-JNJFOC-20101205276

PATIENT
  Sex: Female

DRUGS (4)
  1. DURAGESIC-50 [Suspect]
     Indication: FIBROMYALGIA
     Route: 062
  2. DURAGESIC-50 [Suspect]
     Route: 062
  3. FENTANYL-100 [Suspect]
     Indication: FIBROMYALGIA
     Route: 062
  4. METOPROLOL [Concomitant]
     Indication: ILL-DEFINED DISORDER
     Route: 065

REACTIONS (4)
  - APPLICATION SITE RASH [None]
  - DRUG ADMINISTERED AT INAPPROPRIATE SITE [None]
  - DRUG EFFECT DECREASED [None]
  - IRRITABILITY [None]
